FAERS Safety Report 5327914-2 (Version None)
Quarter: 2007Q2

REPORT INFORMATION
  Report Type: 
  Country: None (occurrence: None)
  Receive Date: 20070517
  Receipt Date: 20070314
  Transmission Date: 20071010
  Serious: Yes (Death)
  Sender: FDA-Public Use
  Company Number: JP-BOEHRINGER INGELHEIM PHARMACEUTICALS, INC.-2007-BP-03079NB

PATIENT
  Sex: Female

DRUGS (17)
  1. BI-SIFROL TABLETS [Suspect]
     Indication: PARKINSON'S DISEASE
     Route: 048
     Dates: start: 20050204
  2. ALPRAZOLAM [Concomitant]
     Indication: PSYCHOSOMATIC DISEASE
     Route: 048
     Dates: start: 19930730
  3. POLLAKISU [Concomitant]
     Indication: DYSURIA
     Route: 048
     Dates: start: 20020901
  4. ENSURE LIQUID [Concomitant]
     Indication: EATING DISORDER
     Route: 065
     Dates: start: 20030822
  5. LUDIOMIL [Concomitant]
     Indication: DEPRESSION
     Route: 048
     Dates: start: 20040618
  6. MENESIT [Concomitant]
     Indication: PARKINSON'S DISEASE
     Route: 048
     Dates: start: 20020607
  7. PERMAX [Concomitant]
     Indication: PARKINSON'S DISEASE
     Route: 048
     Dates: start: 20030601
  8. GRAMALIL [Concomitant]
     Indication: DYSKINESIA
     Route: 048
     Dates: start: 20050920
  9. SEROQUEL [Concomitant]
     Indication: SCHIZOPHRENIA
     Route: 048
     Dates: start: 20060623
  10. SENNOSIDE [Concomitant]
     Indication: CONSTIPATION
     Route: 048
     Dates: start: 20050824
  11. DEPAS [Concomitant]
     Indication: PSYCHOSOMATIC DISEASE
     Route: 048
     Dates: start: 20060120
  12. VOLTAREN [Concomitant]
     Indication: BACK PAIN
     Dates: start: 20051125
  13. MYSLEE [Concomitant]
     Indication: INSOMNIA
     Dates: start: 20050817
  14. MICARDIS [Concomitant]
     Indication: HYPERTENSION
     Route: 048
     Dates: start: 20050708
  15. RINDERON-VG [Concomitant]
     Indication: ECZEMA
     Route: 062
     Dates: start: 20051125
  16. LAMISIL [Concomitant]
     Indication: TINEA INFECTION
     Route: 062
     Dates: start: 20060317
  17. GASMOTIN [Concomitant]
     Indication: GASTRITIS
     Dates: start: 20050919

REACTIONS (1)
  - DEATH [None]
